FAERS Safety Report 15931857 (Version 1)
Quarter: 2019Q1

REPORT INFORMATION
  Report Type: Report from Study
  Country: US (occurrence: US)
  Receive Date: 20190207
  Receipt Date: 20190207
  Transmission Date: 20190417
  Serious: Yes (Other)
  Sender: FDA-Public Use
  Company Number: US-BAUSCH-BL-2019-003791

PATIENT
  Age: 78 Year
  Sex: Female

DRUGS (3)
  1. CUPRIMINE [Suspect]
     Active Substance: PENICILLAMINE
     Indication: CYSTINURIA
     Dosage: STARTED ON A LOWER DOSE
     Route: 048
     Dates: start: 1966
  2. CUPRIMINE [Suspect]
     Active Substance: PENICILLAMINE
     Route: 048
  3. CUPRIMINE [Suspect]
     Active Substance: PENICILLAMINE
     Route: 048
     Dates: start: 201901, end: 201901

REACTIONS (3)
  - Intentional product use issue [Recovered/Resolved]
  - Nephrolithiasis [Not Recovered/Not Resolved]
  - Product distribution issue [Not Recovered/Not Resolved]

NARRATIVE: CASE EVENT DATE: 201901
